FAERS Safety Report 9657243 (Version 2)
Quarter: 2013Q4

REPORT INFORMATION
  Report Type: Report from Study
  Country: CA (occurrence: CA)
  Receive Date: 20131030
  Receipt Date: 20131106
  Transmission Date: 20140711
  Serious: Yes (Hospitalization)
  Sender: FDA-Public Use
  Company Number: CA-ABBVIE-13P-028-1162753-00

PATIENT
  Age: 74 Year
  Sex: Male

DRUGS (20)
  1. HUMIRA [Suspect]
     Indication: RHEUMATOID ARTHRITIS
     Route: 058
     Dates: start: 20130619
  2. HUMIRA [Suspect]
     Indication: CROHN^S DISEASE
     Dates: start: 20131001
  3. HYDROXYQUINE [Concomitant]
     Indication: PRODUCT USED FOR UNKNOWN INDICATION
     Route: 048
  4. TYLENOL WITH CODEINE NO. 1 [Concomitant]
     Indication: PAIN MANAGEMENT
     Route: 048
  5. VERAPAMIL [Concomitant]
     Indication: HYPERTENSION
     Route: 048
  6. SULFASALAZINE [Concomitant]
     Indication: RHEUMATOID ARTHRITIS
     Route: 048
  7. PREGABALIN [Concomitant]
     Indication: PRODUCT USED FOR UNKNOWN INDICATION
     Route: 048
  8. BROMAZEPAM [Concomitant]
     Indication: ANXIETY
     Route: 048
  9. ALLOPURINOL [Concomitant]
     Indication: PRODUCT USED FOR UNKNOWN INDICATION
     Route: 048
  10. MAGNESIUM [Concomitant]
     Indication: MINERAL SUPPLEMENTATION
     Route: 048
  11. VITAMIN D [Concomitant]
     Indication: VITAMIN SUPPLEMENTATION
     Route: 048
  12. TANFULOSINCER [Concomitant]
     Indication: HYPERTONIC BLADDER
     Route: 048
  13. VITAMIN B1 [Concomitant]
     Indication: HYPERTENSION
     Route: 048
  14. COVERSYL [Concomitant]
     Indication: HYPERTENSION
     Route: 048
  15. OMEPRAZOLE [Concomitant]
     Indication: PRODUCT USED FOR UNKNOWN INDICATION
     Route: 048
  16. AVODART [Concomitant]
     Indication: PROSTATIC DISORDER
     Route: 048
  17. DETROL LA [Concomitant]
     Indication: HYPERTONIC BLADDER
     Route: 048
  18. PRAMIPEXOLE [Concomitant]
     Indication: RESTLESS LEGS SYNDROME
     Route: 048
  19. CALCIUM [Concomitant]
     Indication: PRODUCT USED FOR UNKNOWN INDICATION
     Route: 048
  20. BENZEDRINE [Concomitant]
     Indication: MUSCLE RELAXANT THERAPY
     Route: 048

REACTIONS (6)
  - Intestinal obstruction [Recovered/Resolved]
  - Crohn^s disease [Not Recovered/Not Resolved]
  - Gastric mucosal lesion [Recovered/Resolved]
  - Intestinal stenosis [Recovered/Resolved]
  - Local swelling [Not Recovered/Not Resolved]
  - Crohn^s disease [Unknown]
